FAERS Safety Report 6338552-7 (Version None)
Quarter: 2009Q3

REPORT INFORMATION
  Report Type: 
  Country: None (occurrence: None)
  Receive Date: 20090901
  Receipt Date: 20090820
  Transmission Date: 20100115
  Serious: Yes (Other)
  Sender: FDA-Public Use
  Company Number: ADR16912009

PATIENT
  Age: 19 Year
  Sex: Male

DRUGS (2)
  1. CITALOPRAM HYDROBROMIDE [Suspect]
     Dosage: 20 MG
     Dates: start: 20040101
  2. RISPERDAL [Concomitant]

REACTIONS (3)
  - ERECTILE DYSFUNCTION [None]
  - FLUID RETENTION [None]
  - WEIGHT INCREASED [None]
